FAERS Safety Report 23566361 (Version 1)
Quarter: 2024Q1

REPORT INFORMATION
  Report Type: Spontaneous
  Country: US (occurrence: US)
  Receive Date: 20240226
  Receipt Date: 20240226
  Transmission Date: 20240410
  Serious: Yes (Hospitalization)
  Sender: FDA-Public Use
  Company Number: US-SA-SAC20240223001319

PATIENT
  Age: 18 Year
  Sex: Male
  Weight: 72.9 kg

DRUGS (1)
  1. DUPIXENT [Suspect]
     Active Substance: DUPILUMAB
     Indication: Asthma
     Dosage: 300 MG OTHER
     Route: 058

REACTIONS (2)
  - Dyspnoea [Recovering/Resolving]
  - Hypersensitivity [Recovering/Resolving]
